FAERS Safety Report 7746912-2 (Version None)
Quarter: 2011Q3

REPORT INFORMATION
  Report Type: 
  Country: None (occurrence: None)
  Receive Date: 20110913
  Receipt Date: 20110830
  Transmission Date: 20111222
  Serious: Yes (Hospitalization, Other)
  Sender: FDA-Public Use
  Company Number: PHHY2011BR77385

PATIENT
  Sex: Male

DRUGS (2)
  1. DIOVAN [Suspect]
     Dosage: 160 MG, ONE TABLET DAILY
     Route: 048
  2. EXFORGE [Suspect]
     Dosage: 1 DF, (320/10 MG ONE TABLET DAILY)
     Route: 048

REACTIONS (1)
  - LOCALISED INFECTION [None]
